FAERS Safety Report 8109763-5 (Version None)
Quarter: 2012Q1

REPORT INFORMATION
  Report Type: 
  Country: None (occurrence: None)
  Receive Date: 20120202
  Receipt Date: 20120118
  Transmission Date: 20120608
  Serious: No
  Sender: FDA-Public Use
  Company Number: US-AMGEN-USASP2011039421

PATIENT
  Age: 11 Year
  Sex: Male
  Weight: 39.5 kg

DRUGS (3)
  1. OMEPRAZOLE [Concomitant]
     Dosage: 20 MG, DAILY
     Route: 048
     Dates: start: 20110404
  2. NAPROSYN [Concomitant]
     Indication: JUVENILE ARTHRITIS
     Dosage: 250 MG, BID
     Route: 048
     Dates: start: 20110323
  3. ENBREL [Suspect]
     Indication: JUVENILE ARTHRITIS
     Dosage: 0.64 MG, QWK
     Route: 058
     Dates: start: 20110630

REACTIONS (2)
  - DECREASED APPETITE [None]
  - STOMATITIS [None]
